FAERS Safety Report 13505260 (Version 1)
Quarter: 2017Q2

REPORT INFORMATION
  Report Type: Other
  Country: FR (occurrence: FR)
  Receive Date: 20170502
  Receipt Date: 20170502
  Transmission Date: 20170830
  Serious: Yes (Other)
  Sender: FDA-Public Use
  Company Number: FR-GE HEALTHCARE LIFE SCIENCES-VISP-PR-1609S-0530

PATIENT

DRUGS (3)
  1. VISIPAQUE [Suspect]
     Active Substance: IODIXANOL
     Dosage: 100 ML, SINGLE
     Route: 042
     Dates: start: 20150102, end: 20150102
  2. VISIPAQUE [Suspect]
     Active Substance: IODIXANOL
     Indication: VARICOSE VEIN
     Dosage: 217 ML, SINGLE
     Route: 042
     Dates: start: 20141114, end: 20141114
  3. LIPIODOL ULTRA-FLUIDE [Suspect]
     Active Substance: ETHIODIZED OIL
     Indication: VARICOSE VEIN
     Dosage: 1.5 ML, SINGLE
     Route: 042
     Dates: start: 20150102, end: 20150102

REACTIONS (1)
  - Hyperthyroidism [Recovered/Resolved]

NARRATIVE: CASE EVENT DATE: 201512
